FAERS Safety Report 15602802 (Version 2)
Quarter: 2018Q4

REPORT INFORMATION
  Report Type: Report from Study
  Country: JP (occurrence: JP)
  Receive Date: 20181109
  Receipt Date: 20181114
  Transmission Date: 20190205
  Serious: Yes (Hospitalization)
  Sender: FDA-Public Use
  Company Number: JP-EXELIXIS-XL18418016935

PATIENT
  Age: 51 Year
  Sex: Female
  Weight: 50.9 kg

DRUGS (15)
  1. TELMISARTAN. [Concomitant]
     Active Substance: TELMISARTAN
     Indication: HYPERTENSION
     Dosage: 40 MG, QD
     Route: 048
     Dates: start: 20150811
  2. INDOMETACIN [Concomitant]
     Active Substance: INDOMETHACIN
     Indication: TEMPOROMANDIBULAR JOINT SYNDROME
     Dosage: UNK
     Route: 062
     Dates: start: 20180830
  3. CABOZANTINIB [Suspect]
     Active Substance: CABOZANTINIB
     Dosage: 20 MG, QD
     Route: 048
     Dates: start: 20180327, end: 20181009
  4. SENNOSIDE A+B [Concomitant]
     Active Substance: SENNOSIDES A AND B
     Indication: CONSTIPATION PROPHYLAXIS
     Dosage: 50 MG, TID
     Route: 048
     Dates: start: 20181022
  5. OXYCODONE HYDROCHLORIDE. [Concomitant]
     Active Substance: OXYCODONE HYDROCHLORIDE
     Indication: CANCER PAIN
     Dosage: 5 MG, BID
     Route: 048
     Dates: start: 20181022
  6. CABOZANTINIB [Suspect]
     Active Substance: CABOZANTINIB
     Indication: RENAL CELL CARCINOMA
     Dosage: 60 MG, QD
     Route: 048
     Dates: start: 20180130, end: 20180212
  7. URAPIDIL [Concomitant]
     Active Substance: URAPIDIL
     Indication: HYPERTENSION
     Dosage: 15 MG, BID
     Route: 048
     Dates: start: 20160308
  8. METOCLOPRAMIDE HYDROCHLORIDE. [Concomitant]
     Active Substance: METOCLOPRAMIDE HYDROCHLORIDE
     Indication: PROPHYLAXIS
     Dosage: 5 MG, BID
     Route: 048
     Dates: start: 20170620
  9. CABOZANTINIB [Suspect]
     Active Substance: CABOZANTINIB
     Dosage: 40 MG, QD
     Route: 048
     Dates: start: 20180227, end: 20180311
  10. LEVOTHYROXINE SODIUM. [Concomitant]
     Active Substance: LEVOTHYROXINE SODIUM
     Indication: HYPOTHYROIDISM
     Dosage: 50 UG, QD
     Route: 048
     Dates: start: 20150331
  11. SENNOSIDE A+B [Concomitant]
     Active Substance: SENNOSIDES A AND B
     Indication: TEMPOROMANDIBULAR JOINT SYNDROME
     Dosage: 50 MG, TID
     Route: 048
     Dates: start: 20181022
  12. LOXOPROFEN SODIUM [Concomitant]
     Active Substance: LOXOPROFEN SODIUM
     Indication: SCIATICA
     Dosage: 60 MG, BID
     Route: 048
     Dates: start: 20180628
  13. INDOMETACIN [Concomitant]
     Active Substance: INDOMETHACIN
     Indication: PERIODONTITIS
  14. SENNOSIDE A+B [Concomitant]
     Active Substance: SENNOSIDES A AND B
     Dosage: 50 MG, TID
     Route: 048
     Dates: start: 20181022
  15. BETAMETHASONE VALERATE, GENTAMICIN SULFATE [Concomitant]
     Indication: DECUBITUS ULCER
     Dosage: UNK
     Route: 062
     Dates: start: 20180911

REACTIONS (1)
  - Jaundice cholestatic [Not Recovered/Not Resolved]

NARRATIVE: CASE EVENT DATE: 20181030
